FAERS Safety Report 9769971 (Version 1)
Quarter: 2013Q4

REPORT INFORMATION
  Report Type: Spontaneous
  Country: US (occurrence: US)
  Receive Date: 20131218
  Receipt Date: 20131218
  Transmission Date: 20140711
  Serious: No
  Sender: FDA-Public Use
  Company Number: US-VERTEX PHARMACEUTICALS INC-AE-2011-001031

PATIENT
  Age: 48 Year
  Sex: Male

DRUGS (10)
  1. INCIVEK [Suspect]
     Indication: HEPATITIS C
     Route: 048
     Dates: start: 20110807
  2. PEGASYS [Concomitant]
     Indication: HEPATITIS C
     Route: 058
     Dates: start: 20110807
  3. COPEGUS [Concomitant]
     Indication: HEPATITIS C
     Route: 048
     Dates: start: 20110807
  4. ZANAFLEX [Concomitant]
  5. VISTARIL [Concomitant]
  6. NORCO [Concomitant]
  7. SONATA [Concomitant]
  8. PRILOSEC [Concomitant]
  9. PHENERGAN [Concomitant]
  10. ALBUTEROL INHALER [Concomitant]

REACTIONS (1)
  - Rectal haemorrhage [Not Recovered/Not Resolved]
